FAERS Safety Report 9286542 (Version 1)
Quarter: 2013Q2

REPORT INFORMATION
  Report Type: Spontaneous
  Country: JP (occurrence: None)
  Receive Date: 20130508
  Receipt Date: 20130508
  Transmission Date: 20140414
  Serious: Yes (Hospitalization, Other)
  Sender: FDA-Public Use
  Company Number: DAV-AE-MTX-13-32

PATIENT
  Age: 7 Year
  Sex: Male

DRUGS (2)
  1. METHOTREXATE [Suspect]
     Indication: T-CELL TYPE ACUTE LEUKAEMIA
  2. 6-MERCAPTOPURINE [Suspect]
     Indication: T-CELL TYPE ACUTE LEUKAEMIA

REACTIONS (2)
  - Cytomegalovirus chorioretinitis [None]
  - Histiocytosis haematophagic [None]
